FAERS Safety Report 4694727-4 (Version None)
Quarter: 2005Q2

REPORT INFORMATION
  Report Type: 
  Country: None (occurrence: None)
  Receive Date: 20050617
  Receipt Date: 20050609
  Transmission Date: 20051028
  Serious: Yes (Other)
  Sender: FDA-Public Use
  Company Number: 200510862BWH

PATIENT
  Age: 57 Year
  Sex: Female
  Weight: 68.0396 kg

DRUGS (4)
  1. AVELOX [Suspect]
     Indication: CHRONIC SINUSITIS
     Dosage: 400 MG QD ORAL
     Route: 048
     Dates: start: 20050228, end: 20050313
  2. AVELOX [Suspect]
     Indication: CONDITION AGGRAVATED
     Dosage: 400 MG QD ORAL
     Route: 048
     Dates: start: 20050228, end: 20050313
  3. DEPAKOTE [Concomitant]
  4. LAMICTAL [Concomitant]

REACTIONS (2)
  - BIPOLAR I DISORDER [None]
  - COMPUTERISED TOMOGRAM ABNORMAL [None]
